FAERS Safety Report 7529791-8 (Version None)
Quarter: 2011Q2

REPORT INFORMATION
  Report Type: 
  Country: None (occurrence: None)
  Receive Date: 20110607
  Receipt Date: 20110526
  Transmission Date: 20111010
  Serious: Yes (Hospitalization, Other)
  Sender: FDA-Public Use
  Company Number: AU-ASTRAZENECA-2011SE33276

PATIENT
  Age: 32 Year
  Sex: Female

DRUGS (6)
  1. SEROQUEL XR [Suspect]
     Indication: BIPOLAR DISORDER
     Route: 048
  2. TEGRETOL [Concomitant]
     Indication: MOOD ALTERED
     Dosage: DAILY
     Route: 048
  3. FOLIC ACID [Concomitant]
     Indication: PREGNANCY
  4. TEGRETOL [Concomitant]
     Indication: EPILEPSY
     Dosage: DAILY
     Route: 048
  5. LITHIUM CARBONATE [Suspect]
     Indication: MOOD ALTERED
     Route: 048
  6. CENOVIS MULTIVITAMIN [Concomitant]
     Indication: VITAMIN SUPPLEMENTATION
     Route: 048

REACTIONS (5)
  - DRUG EXPOSURE DURING PREGNANCY [None]
  - KIDNEY INFECTION [None]
  - GESTATIONAL DIABETES [None]
  - CAESAREAN SECTION [None]
  - HOSPITALISATION [None]
